FAERS Safety Report 5235368-X (Version None)
Quarter: 2007Q1

REPORT INFORMATION
  Report Type: 
  Country: None (occurrence: None)
  Receive Date: 20070208
  Receipt Date: 20070208
  Transmission Date: 20070707
  Serious: No
  Sender: FDA-Public Use
  Company Number: None

PATIENT
  Sex: Male
  Weight: 75.5239 kg

DRUGS (1)
  1. RISPERIDONE [Suspect]
     Indication: DEMENTIA
     Dosage: 1.5MG BID PO
     Route: 048
     Dates: start: 20060601, end: 20070101

REACTIONS (2)
  - PARKINSONISM [None]
  - TREMOR [None]
